FAERS Safety Report 10042777 (Version 1)
Quarter: 2014Q1

REPORT INFORMATION
  Report Type: Spontaneous
  Country: MA (occurrence: MA)
  Receive Date: 20140327
  Receipt Date: 20140327
  Transmission Date: 20141002
  Serious: Yes (Death, Other)
  Sender: FDA-Public Use
  Company Number: MA-BAXTER-2014BAX014609

PATIENT
  Age: 55 Year
  Sex: Male

DRUGS (3)
  1. ENDOXAN VIALS 1G [Suspect]
     Indication: DIFFUSE LARGE B-CELL LYMPHOMA
     Dosage: DAY 1
     Route: 065
  2. VINCRISTINE [Suspect]
     Indication: DIFFUSE LARGE B-CELL LYMPHOMA
     Dosage: DAY 1
     Route: 065
  3. PREDNISOLONE [Suspect]
     Indication: DIFFUSE LARGE B-CELL LYMPHOMA
     Dosage: DAYS 1-5
     Route: 065

REACTIONS (2)
  - Guillain-Barre syndrome [Unknown]
  - Neurotoxicity [Fatal]
